FAERS Safety Report 5794216-X (Version None)
Quarter: 2008Q2

REPORT INFORMATION
  Report Type: 
  Country: None (occurrence: None)
  Receive Date: 20080627
  Receipt Date: 20080613
  Transmission Date: 20081010
  Serious: Yes (Other)
  Sender: FDA-Public Use
  Company Number: CA-GENENTECH-263189

PATIENT
  Sex: Female

DRUGS (4)
  1. AVASTIN [Suspect]
     Indication: COLORECTAL CANCER METASTATIC
     Dosage: UNK, Q2W
     Route: 042
     Dates: start: 20080116
  2. IRINOTECAN HCL [Suspect]
     Indication: COLORECTAL CANCER
     Dates: start: 20071220
  3. LEUCOVORIN CALCIUM [Suspect]
     Indication: COLORECTAL CANCER
     Dates: start: 20071220
  4. FLUOROURACIL [Suspect]
     Indication: COLORECTAL CANCER
     Dates: start: 20071220

REACTIONS (1)
  - NAIL DISCOLOURATION [None]
